FAERS Safety Report 12264918 (Version 1)
Quarter: 2016Q2

REPORT INFORMATION
  Report Type: Spontaneous
  Country: US (occurrence: US)
  Receive Date: 20160413
  Receipt Date: 20160413
  Transmission Date: 20160815
  Serious: No
  Sender: FDA-Public Use
  Company Number: US-JNJFOC-20160308140

PATIENT
  Age: 57 Year
  Sex: Male
  Weight: 90.72 kg

DRUGS (3)
  1. TYLENOL 8 HR ARTHRITIS PAIN [Suspect]
     Active Substance: ACETAMINOPHEN
     Route: 048
  2. CLONIDINE. [Concomitant]
     Active Substance: CLONIDINE
     Indication: HYPERTENSION
     Route: 065
  3. TYLENOL 8 HR ARTHRITIS PAIN [Suspect]
     Active Substance: ACETAMINOPHEN
     Indication: ARTHRALGIA
     Dosage: X 2 DAYS
     Route: 048
     Dates: start: 20160301, end: 20160303

REACTIONS (5)
  - Inappropriate schedule of drug administration [Recovered/Resolved]
  - Abdominal pain upper [Recovered/Resolved]
  - Faeces pale [Recovered/Resolved]
  - Abdominal pain [Recovered/Resolved]
  - Ocular icterus [Recovered/Resolved]

NARRATIVE: CASE EVENT DATE: 20160301
